FAERS Safety Report 7919665-2 (Version None)
Quarter: 2011Q4

REPORT INFORMATION
  Report Type: 
  Country: None (occurrence: None)
  Receive Date: 20111115
  Receipt Date: 20111101
  Transmission Date: 20120403
  Serious: Yes (Other)
  Sender: FDA-Public Use
  Company Number: 2011-2985

PATIENT
  Age: 3 Year
  Sex: Female
  Weight: 13.2 kg

DRUGS (12)
  1. RANITIDINE HYDROCHLORIDE [Concomitant]
  2. PHENOBARBITAL TAB [Concomitant]
  3. INCRELEX [Suspect]
     Indication: GROWTH HORMONE DEFICIENCY
     Dosage: 30 UNITS (15 UNITS, 2 IN 1 D), SUBCUTANEOUS
     Route: 058
     Dates: start: 20110301
  4. MULTIVITAMIN (MULTIVITAMIN) [Concomitant]
  5. TOBRAMYCIN [Concomitant]
  6. ROBINUL (GLYCOPYRRONIUM BROMIDE) [Concomitant]
  7. DILANTIN [Suspect]
     Indication: PRODUCT USED FOR UNKNOWN INDICATION
     Dosage: 4 ML (2 ML, 2 IN 1 D), OTHER
     Dates: start: 20110701
  8. ALBUTEROL [Concomitant]
  9. QVAR MDI (BECLOMETASONE DIPROPIONATE) [Concomitant]
  10. IPRATROPIUM BROMIDE [Concomitant]
  11. KEPPRA [Suspect]
     Indication: CONVULSION
     Dosage: 6 ML (3 ML, 2 IN 1 D), OTHER
     Dates: start: 20110401
  12. CALCITRIOL [Concomitant]

REACTIONS (3)
  - ALOPECIA [None]
  - CONDITION AGGRAVATED [None]
  - CONVULSION [None]
